FAERS Safety Report 9266761 (Version 3)
Quarter: 2013Q2

REPORT INFORMATION
  Report Type: Report from Study
  Country: CA (occurrence: CA)
  Receive Date: 20130502
  Receipt Date: 20130605
  Transmission Date: 20140414
  Serious: Yes (Other)
  Sender: FDA-Public Use
  Company Number: CA-ROCHE-1220453

PATIENT
  Sex: Male

DRUGS (13)
  1. ZELBORAF [Suspect]
     Indication: MALIGNANT MELANOMA
     Route: 048
     Dates: start: 20121217, end: 20130506
  2. ZELBORAF [Suspect]
     Dosage: 3 TABLETS IN THE MORNING AND 3 TABLETS IN EVENING
     Route: 048
     Dates: start: 20130513
  3. ATORVASTATIN [Concomitant]
     Route: 048
  4. TEVA-AMLODIPINE [Concomitant]
     Route: 048
  5. APO-FOLIC [Concomitant]
     Route: 048
  6. FLOVENT [Concomitant]
     Dosage: PUFFER
     Route: 065
  7. FERROUS SULPHATE [Concomitant]
  8. PRIMIDONE [Concomitant]
     Route: 048
  9. OMEPRAZOLE [Concomitant]
     Route: 048
  10. CARBAMAZEPINE [Concomitant]
     Route: 048
  11. COPHYLAC [Concomitant]
     Route: 048
  12. VENTOLIN [Concomitant]
  13. COVERSYL [Concomitant]
     Indication: BLOOD PRESSURE INCREASED

REACTIONS (7)
  - Blood creatinine increased [Unknown]
  - Confusional state [Recovering/Resolving]
  - Speech disorder [Recovering/Resolving]
  - Mobility decreased [Recovering/Resolving]
  - Memory impairment [Recovering/Resolving]
  - Somnolence [Recovering/Resolving]
  - Fall [Recovering/Resolving]
